FAERS Safety Report 6035153-5 (Version None)
Quarter: 2009Q1

REPORT INFORMATION
  Report Type: 
  Country: None (occurrence: None)
  Receive Date: 20090112
  Receipt Date: 20090105
  Transmission Date: 20090719
  Serious: No
  Sender: FDA-Public Use
  Company Number: US-B.I. PHARMACEUTICALS,INC./RIDGEFIELD-2009-BP-00031BP

PATIENT
  Age: 43 Year
  Sex: Male

DRUGS (1)
  1. FLOMAX [Suspect]
     Indication: MICTURITION DISORDER
     Dosage: .4MG
     Route: 048
     Dates: start: 20081231

REACTIONS (1)
  - ABDOMINAL PAIN UPPER [None]
